FAERS Safety Report 8897638 (Version 1)
Quarter: 2012Q4

REPORT INFORMATION
  Report Type: Spontaneous
  Country: US (occurrence: None)
  Receive Date: 20121106
  Receipt Date: 20121106
  Transmission Date: 20130627
  Serious: Yes (Hospitalization)
  Sender: FDA-Public Use
  Company Number: 1021430

PATIENT
  Age: 31 Year
  Sex: Male
  Weight: 70.31 kg

DRUGS (2)
  1. OXYQUINOLINE [Suspect]
     Indication: RASH
     Route: 061
     Dates: start: 20120805
  2. OXYQUINOLINE [Suspect]
     Indication: ABRASION NOS
     Route: 061
     Dates: start: 20120805

REACTIONS (5)
  - Oedema peripheral [None]
  - Infection [None]
  - Drug ineffective [None]
  - Injury [None]
  - Loss of employment [None]
